FAERS Safety Report 12001409 (Version 1)
Quarter: 2016Q1

REPORT INFORMATION
  Report Type: Spontaneous
  Country: FR (occurrence: FR)
  Receive Date: 20160204
  Receipt Date: 20160204
  Transmission Date: 20160526
  Serious: Yes (Hospitalization)
  Sender: FDA-Public Use
  Company Number: FR-PFIZER INC-2016057306

PATIENT
  Age: 55 Year
  Sex: Male

DRUGS (11)
  1. GENTAMICIN. [Concomitant]
     Active Substance: GENTAMICIN
     Dosage: 640 MG, UNK
     Dates: start: 20151228
  2. BISOPROLOL [Concomitant]
     Active Substance: BISOPROLOL
     Dosage: UNK
  3. INIPOMP [Concomitant]
     Active Substance: PANTOPRAZOLE SODIUM
     Dosage: UNK
  4. SOLUPRED [Concomitant]
     Active Substance: PREDNISOLONE
     Dosage: UNK
  5. SPECIAFOLDINE [Concomitant]
     Active Substance: FOLIC ACID
     Dosage: UNK
  6. CORDARONE [Suspect]
     Active Substance: AMIODARONE HYDROCHLORIDE
     Indication: ATRIAL FIBRILLATION
     Dosage: 300 MG, UNK
     Route: 065
     Dates: start: 20151229, end: 20151231
  7. PRIMPERAN [Concomitant]
     Active Substance: METOCLOPRAMIDE HYDROCHLORIDE
     Dosage: UNK
  8. DUROGESIC [Concomitant]
     Active Substance: FENTANYL
     Dosage: UNK
  9. ACTISKENAN [Concomitant]
     Active Substance: MORPHINE SULFATE
     Dosage: UNK
  10. TAZOCILLINE [Concomitant]
     Active Substance: PIPERACILLIN SODIUM\TAZOBACTAM SODIUM
     Dosage: 4 G, 3X/DAY
     Dates: start: 20151228
  11. DIGOXINE [Concomitant]
     Active Substance: DIGOXIN
     Dosage: 0.5 MG, UNK
     Dates: start: 20151229

REACTIONS (3)
  - Acute respiratory distress syndrome [Recovering/Resolving]
  - Lung disorder [Recovering/Resolving]
  - Lung infiltration [Recovering/Resolving]

NARRATIVE: CASE EVENT DATE: 20151230
